FAERS Safety Report 9191779 (Version 5)
Quarter: 2015Q2

REPORT INFORMATION
  Report Type: Report from Study
  Country: US (occurrence: US)
  Receive Date: 20130327
  Receipt Date: 20150403
  Transmission Date: 20150821
  Serious: Yes (Hospitalization)
  Sender: FDA-Public Use
  Company Number: US-BIOGENIDEC-2013BI027866

PATIENT
  Sex: Female

DRUGS (2)
  1. TYSABRI [Suspect]
     Active Substance: NATALIZUMAB
     Indication: MULTIPLE SCLEROSIS
     Route: 042
     Dates: start: 20091112, end: 20120726
  2. TYSABRI [Suspect]
     Active Substance: NATALIZUMAB
     Indication: MULTIPLE SCLEROSIS
     Route: 042
     Dates: start: 20121218

REACTIONS (16)
  - Balance disorder [Unknown]
  - Multiple sclerosis relapse [Recovered/Resolved]
  - Diplopia [Not Recovered/Not Resolved]
  - Optic atrophy [Not Recovered/Not Resolved]
  - Nephrolithiasis [Recovered/Resolved]
  - Tremor [Not Recovered/Not Resolved]
  - Cough [Not Recovered/Not Resolved]
  - Blood potassium decreased [Recovered/Resolved]
  - Muscle spasms [Recovered/Resolved]
  - Depression [Not Recovered/Not Resolved]
  - Bronchitis [Recovered/Resolved]
  - Vision blurred [Not Recovered/Not Resolved]
  - Visual impairment [Not Recovered/Not Resolved]
  - Stent placement [Unknown]
  - Optic neuritis [Not Recovered/Not Resolved]
  - Colour blindness [Not Recovered/Not Resolved]

NARRATIVE: CASE EVENT DATE: 2009
